FAERS Safety Report 9132243 (Version 2)
Quarter: 2013Q1

REPORT INFORMATION
  Report Type: Spontaneous
  Country: US (occurrence: US)
  Receive Date: 20130301
  Receipt Date: 20130315
  Transmission Date: 20140127
  Serious: Yes (Other)
  Sender: FDA-Public Use
  Company Number: US-PFIZER INC-2013067808

PATIENT
  Age: 17 Year
  Sex: Male
  Weight: 70.3 kg

DRUGS (2)
  1. BENEFIX [Suspect]
     Indication: HAEMOPHILIA
     Dosage: 5 IU/KG, AS NEEDED (FACTOR IS ADMINISTERED ONLY WHEN THERE IS BLEEDING)
  2. BENEFIX [Suspect]
     Indication: FACTOR IX DEFICIENCY

REACTIONS (2)
  - Haemorrhage [Unknown]
  - Disease complication [Unknown]
